FAERS Safety Report 25792372 (Version 2)
Quarter: 2025Q3

REPORT INFORMATION
  Report Type: Spontaneous
  Country: US (occurrence: US)
  Receive Date: 20250911
  Receipt Date: 20250918
  Transmission Date: 20251021
  Serious: Yes (Hospitalization)
  Sender: BAUSCH AND LOMB
  Company Number: US-BAUSCH-BH-2025-017288

PATIENT
  Sex: Female

DRUGS (2)
  1. ATIVAN [Suspect]
     Active Substance: LORAZEPAM
     Indication: Anxiety
     Route: 065
     Dates: start: 2024
  2. ATIVAN [Suspect]
     Active Substance: LORAZEPAM
     Dosage: 1 PILLS A DAY
     Route: 065

REACTIONS (3)
  - Adverse drug reaction [Unknown]
  - Dehydration [Unknown]
  - Intentional underdose [Unknown]
